FAERS Safety Report 7809576-5 (Version None)
Quarter: 2011Q4

REPORT INFORMATION
  Report Type: 
  Country: None (occurrence: None)
  Receive Date: 20111012
  Receipt Date: 20111012
  Transmission Date: 20120403
  Serious: Yes (Other)
  Sender: FDA-Public Use
  Company Number: PHHO2010US09510

PATIENT
  Sex: Female
  Weight: 62.14 kg

DRUGS (9)
  1. SYNTHROID [Concomitant]
     Indication: HYPOTHYROIDISM
  2. NEXIUM [Concomitant]
     Indication: IMPAIRED GASTRIC EMPTYING
  3. GILENYA [Suspect]
     Indication: MULTIPLE SCLEROSIS
     Dosage: 0.5 MG, UNK
     Route: 048
     Dates: start: 20080624, end: 20100623
  4. NEURONTIN [Concomitant]
     Indication: PAIN
  5. LIPITOR [Concomitant]
     Indication: HYPERCHOLESTEROLAEMIA
  6. NORVASC [Concomitant]
     Indication: HYPERTENSION
  7. GILENYA [Suspect]
     Dosage: 0.5 MG, UNK
     Dates: start: 20110114
  8. GILENYA [Suspect]
     Dosage: 0.5 MG, UNK
     Dates: start: 20100624, end: 20110113
  9. ESTRADIOL [Concomitant]

REACTIONS (2)
  - SKIN DISCOLOURATION [None]
  - BASAL CELL CARCINOMA [None]
